FAERS Safety Report 6372147-4 (Version None)
Quarter: 2009Q3

REPORT INFORMATION
  Report Type: 
  Country: None (occurrence: None)
  Receive Date: 20090917
  Receipt Date: 20090904
  Transmission Date: 20100115
  Serious: Yes (Life-Threatening, Other)
  Sender: FDA-Public Use
  Company Number: ADR16062009

PATIENT
  Age: 43 Year
  Sex: Female

DRUGS (1)
  1. CITALOPRAM [Suspect]
     Indication: ANXIETY
     Dosage: ORAL
     Route: 048
     Dates: start: 20090207, end: 20090215

REACTIONS (2)
  - INTENTIONAL OVERDOSE [None]
  - PANIC ATTACK [None]
